FAERS Safety Report 6566217-5 (Version None)
Quarter: 2010Q1

REPORT INFORMATION
  Report Type: 
  Country: None (occurrence: None)
  Receive Date: 20100202
  Receipt Date: 20100126
  Transmission Date: 20100710
  Serious: Yes (Life-Threatening)
  Sender: FDA-Public Use
  Company Number: FR-PFIZER INC-2010010339

PATIENT
  Age: 36 Year
  Sex: Female

DRUGS (2)
  1. PROSTINE E2 [Suspect]
     Indication: INDUCED LABOUR
     Dosage: 1 DF, SINGLE
     Route: 067
     Dates: start: 20090210, end: 20090210
  2. SPASFON [Concomitant]
     Dosage: UNK
     Route: 042

REACTIONS (2)
  - ANGIOEDEMA [None]
  - URTICARIA [None]
